FAERS Safety Report 4273447-4 (Version None)
Quarter: 2004Q1

REPORT INFORMATION
  Report Type: 
  Country: None (occurrence: None)
  Receive Date: 20040115
  Receipt Date: 20040115
  Transmission Date: 20041129
  Serious: Yes (Hospitalization)
  Sender: FDA-Public Use
  Company Number: None

PATIENT
  Age: 35 Year
  Sex: Female

DRUGS (1)
  1. OSELTAMIVIR  75MG  HOFFMAN LAROCHE [Suspect]
     Indication: INFLUENZA IMMUNISATION
     Dosage: 75MG  DAILY  ORAL
     Route: 048
     Dates: start: 20031212, end: 20031212

REACTIONS (2)
  - ERYTHEMA [None]
  - FEELING HOT [None]
